FAERS Safety Report 6357096-X (Version None)
Quarter: 2009Q3

REPORT INFORMATION
  Report Type: 
  Country: None (occurrence: None)
  Receive Date: 20090910
  Receipt Date: 20090826
  Transmission Date: 20100115
  Serious: Yes (Disabling)
  Sender: FDA-Public Use
  Company Number: 1-8786504

PATIENT
  Sex: Female

DRUGS (1)
  1. SOLODYN [Suspect]
     Indication: ACNE
     Dosage: ORAL
     Route: 048
     Dates: start: 20071201, end: 20081101

REACTIONS (13)
  - ABASIA [None]
  - ARTHRALGIA [None]
  - BLINDNESS TRANSIENT [None]
  - FEELING ABNORMAL [None]
  - HEPATITIS [None]
  - HYPERSOMNIA [None]
  - IMPAIRED DRIVING ABILITY [None]
  - INFLAMMATION [None]
  - OCULAR HYPERAEMIA [None]
  - OCULAR ICTERUS [None]
  - PAIN [None]
  - SYSTEMIC LUPUS ERYTHEMATOSUS [None]
  - VASCULITIS [None]
